FAERS Safety Report 8202445-0 (Version None)
Quarter: 2012Q1

REPORT INFORMATION
  Report Type: 
  Country: None (occurrence: None)
  Receive Date: 20120312
  Receipt Date: 20111201
  Transmission Date: 20120608
  Serious: No
  Sender: FDA-Public Use
  Company Number: US-ABBOTT-11P-163-0880315-00

PATIENT
  Age: 26 Year
  Sex: Female

DRUGS (6)
  1. DEPAKOTE [Suspect]
     Indication: PRODUCT USED FOR UNKNOWN INDICATION
  2. HUMIRA [Suspect]
     Indication: CROHN'S DISEASE
     Dates: start: 20111115
  3. HUMIRA [Suspect]
     Dates: start: 20111130
  4. ZYPREXA [Concomitant]
     Indication: BIPOLAR DISORDER
     Route: 048
  5. HUMIRA [Suspect]
     Dates: start: 20111116
  6. UNKNOWN MEDICATIONS [Concomitant]
     Indication: PRODUCT USED FOR UNKNOWN INDICATION

REACTIONS (1)
  - ABDOMINAL PAIN UPPER [None]
